FAERS Safety Report 8575158-3 (Version None)
Quarter: 2012Q2

REPORT INFORMATION
  Report Type: 
  Country: None (occurrence: None)
  Receive Date: 20120423
  Receipt Date: 20090908
  Transmission Date: 20120825
  Serious: Yes (Other)
  Sender: FDA-Public Use
  Company Number: PHEH2009US08494

PATIENT
  Sex: Female

DRUGS (22)
  1. ATACAND (CANDESARTAN GILEXETIL) [Concomitant]
  2. MULTIVITAMINS (ASCORBIC ACID, ERGOCALCIFEROL, FOLIC ACID, NICOTINAMIDE [Concomitant]
  3. BIDIL [Concomitant]
  4. COREG [Concomitant]
  5. LASIX [Concomitant]
  6. DIGOXIN [Concomitant]
  7. CARVEDILOL [Concomitant]
  8. EXJADE [Suspect]
     Indication: AMYLOIDOSIS
     Dosage: 1500 MG,DAILY, ORAL
     Route: 048
     Dates: start: 20090720, end: 20090722
  9. DARVOCET-N (DEXTROPROPDXYPHENE NAPSILATE, PARACETAMOL) [Concomitant]
  10. VITAMIN D [Concomitant]
  11. ASPIRIN [Concomitant]
  12. NIFEDIAC (NIFEDIPINE) [Concomitant]
  13. HYDRALAZINE HCL [Concomitant]
  14. ISOSORBIDE MONONITRATE (ISOSORBIDE MONONITRATE)` [Concomitant]
  15. ALDACTONE [Concomitant]
  16. CRESTOR [Concomitant]
  17. SPIRONOLACTONE [Concomitant]
  18. PHOSLO [Concomitant]
  19. LISINOPRIL [Concomitant]
  20. CALCIUM CARBONATE [Concomitant]
  21. ADALAT [Concomitant]
  22. SODIUM BICARBONATE IN PLASTIC CONTAINER [Concomitant]

REACTIONS (2)
  - BLOOD CREATININE INCREASED [None]
  - DIARRHOEA [None]
